FAERS Safety Report 9744024 (Version 2)
Quarter: 2014Q1

REPORT INFORMATION
  Report Type: Spontaneous
  Country: BR (occurrence: BR)
  Receive Date: 20131210
  Receipt Date: 20140212
  Transmission Date: 20141002
  Serious: Yes (Hospitalization, Other)
  Sender: FDA-Public Use
  Company Number: BR-ASTRAZENECA-2013SE88345

PATIENT
  Age: 84 Year
  Sex: Female
  Weight: 58 kg

DRUGS (6)
  1. ATACAND [Suspect]
     Indication: HYPERTENSION
     Dosage: DAILY
     Route: 048
     Dates: end: 201311
  2. PURAN T4 [Concomitant]
     Indication: THYROID DISORDER
     Dosage: EVERY MORNING
     Route: 048
     Dates: start: 2012
  3. PROCIMAX [Concomitant]
     Indication: DEPRESSION
     Dosage: DAILY
     Route: 048
     Dates: start: 2012
  4. GLUCOSAMIN [Concomitant]
     Indication: OSTEOARTHRITIS
     Dosage: DAILY
     Route: 048
     Dates: start: 2004
  5. SIMVASTATIN [Concomitant]
     Indication: BLOOD CHOLESTEROL INCREASED
     Dosage: DAILY
     Route: 048
     Dates: start: 2011
  6. ACETAMINOPHEN [Concomitant]
     Indication: PAIN
     Dosage: AS REQUIRED
     Route: 048

REACTIONS (5)
  - Osteoarthritis [Not Recovered/Not Resolved]
  - Drug ineffective [Unknown]
  - Blood pressure fluctuation [Recovered/Resolved]
  - Blood cholesterol increased [Recovered/Resolved]
  - Thyroid disorder [Recovering/Resolving]
